FAERS Safety Report 18400247 (Version 3)
Quarter: 2021Q1

REPORT INFORMATION
  Report Type: Spontaneous
  Country: US (occurrence: US)
  Receive Date: 20201019
  Receipt Date: 20210223
  Transmission Date: 20210419
  Serious: No
  Sender: FDA-Public Use
  Company Number: US-PFIZER INC-2020403027

PATIENT
  Age: 50 Year
  Sex: Female

DRUGS (5)
  1. IBRANCE [Suspect]
     Active Substance: PALBOCICLIB
     Dosage: 125 MG, CYCLIC, (1 DAILY FOR 21 DAYS)
     Route: 048
     Dates: start: 20201009
  2. LETROZOLE. [Concomitant]
     Active Substance: LETROZOLE
     Dosage: UNK
  3. IBRANCE [Suspect]
     Active Substance: PALBOCICLIB
     Indication: BREAST CANCER FEMALE
     Dosage: 125 MG, CYCLIC, (3 WEEKS ON, 1 WEEK OFF)
     Route: 048
     Dates: start: 20201009
  4. PRILOSEC [Concomitant]
     Active Substance: OMEPRAZOLE MAGNESIUM
     Dosage: UNK
  5. ZOLEDRONIC ACID [Concomitant]
     Active Substance: ZOLEDRONIC ACID
     Dosage: UNK

REACTIONS (6)
  - Glossodynia [Recovered/Resolved]
  - Paraesthesia [Unknown]
  - Oral pain [Recovered/Resolved]
  - Crying [Unknown]
  - Throat irritation [Recovered/Resolved]
  - Emotional disorder [Unknown]
